FAERS Safety Report 12507611 (Version 5)
Quarter: 2017Q1

REPORT INFORMATION
  Report Type: Report from Study
  Country: PA (occurrence: PA)
  Receive Date: 20160629
  Receipt Date: 20170322
  Transmission Date: 20170428
  Serious: Yes (Hospitalization, Other)
  Sender: FDA-Public Use
  Company Number: PHHY2016PA087959

PATIENT
  Sex: Female
  Weight: 75.74 kg

DRUGS (1)
  1. TASIGNA [Suspect]
     Active Substance: NILOTINIB
     Indication: CHRONIC MYELOID LEUKAEMIA
     Dosage: 2 DF, BID  (2 CAPSULES ORALLY IN THE MORNING AND 2 IN THE AFTERNOON)
     Route: 048
     Dates: start: 200910

REACTIONS (15)
  - Hypertension [Recovering/Resolving]
  - Blood pressure increased [Unknown]
  - Vomiting [Unknown]
  - Kidney small [Unknown]
  - Dizziness [Unknown]
  - Calculus urinary [Recovered/Resolved]
  - Renal artery stenosis [Recovering/Resolving]
  - Brain injury [Unknown]
  - Blood creatinine increased [Unknown]
  - Nephrolithiasis [Recovered/Resolved]
  - Renal impairment [Unknown]
  - Malaise [Unknown]
  - Nausea [Unknown]
  - Arterial occlusive disease [Unknown]
  - Headache [Unknown]
